FAERS Safety Report 8868801 (Version 1)
Quarter: 2012Q4

REPORT INFORMATION
  Report Type: 
  Country: US (occurrence: US)
  Receive Date: 20121024
  Receipt Date: 20121024
  Transmission Date: 20130627
  Serious: No
  Sender: FDA-Public Use
  Company Number: US-ASTRAZENECA-2012SE78881

PATIENT
  Sex: Female

DRUGS (2)
  1. SEROQUEL [Suspect]
     Indication: BIPOLAR DISORDER
     Route: 048
     Dates: end: 2012
  2. SEROQUEL [Suspect]
     Indication: BIPOLAR DISORDER
     Dosage: QUETIAPINE
     Route: 048
     Dates: start: 2012

REACTIONS (7)
  - Crying [Unknown]
  - Depression [Unknown]
  - Depressed mood [Unknown]
  - Tachyphrenia [Unknown]
  - Insomnia [Unknown]
  - Irritability [Unknown]
  - Drug ineffective [Unknown]
